FAERS Safety Report 6541120-5 (Version None)
Quarter: 2010Q1

REPORT INFORMATION
  Report Type: 
  Country: None (occurrence: None)
  Receive Date: 20100118
  Receipt Date: 20100111
  Transmission Date: 20100710
  Serious: Yes (Other)
  Sender: FDA-Public Use
  Company Number: B0616075A

PATIENT
  Age: 43 Year
  Sex: Female
  Weight: 90 kg

DRUGS (1)
  1. ALLI [Suspect]
     Dosage: 60MG SINGLE DOSE
     Route: 065
     Dates: start: 20090601, end: 20090603

REACTIONS (3)
  - ANXIETY [None]
  - PANIC REACTION [None]
  - PSYCHOTIC DISORDER [None]
